FAERS Safety Report 5447149-2 (Version None)
Quarter: 2007Q3

REPORT INFORMATION
  Report Type: 
  Country: None (occurrence: None)
  Receive Date: 20070910
  Receipt Date: 20070829
  Transmission Date: 20080115
  Serious: Yes (Other)
  Sender: FDA-Public Use
  Company Number: PHHO2007AR14341

PATIENT
  Age: 77 Year
  Sex: Female

DRUGS (2)
  1. DIOVAN [Suspect]
     Indication: HYPERTENSION
     Dosage: 80 MG, QD
     Route: 048
  2. TRANQUINAL [Concomitant]

REACTIONS (5)
  - BLINDNESS [None]
  - EYE OPERATION [None]
  - GLAUCOMA [None]
  - MACULOPATHY [None]
  - THROMBOSIS [None]
